FAERS Safety Report 9482546 (Version 1)
Quarter: 2013Q3

REPORT INFORMATION
  Report Type: Spontaneous
  Country: US (occurrence: US)
  Receive Date: 20130828
  Receipt Date: 20130828
  Transmission Date: 20140515
  Serious: No
  Sender: FDA-Public Use
  Company Number: US-SANOFI-AVENTIS-2012SA088832

PATIENT
  Age: 82 Year
  Sex: Male

DRUGS (2)
  1. ELIGARD [Suspect]
     Indication: PROSTATE CANCER
     Route: 058
     Dates: start: 20110512, end: 20110512
  2. ELIGARD [Suspect]
     Indication: PROSTATE CANCER
     Route: 058

REACTIONS (5)
  - Local swelling [Unknown]
  - Paraesthesia [Not Recovered/Not Resolved]
  - Pollakiuria [Unknown]
  - Pain in extremity [Not Recovered/Not Resolved]
  - Rash pruritic [Not Recovered/Not Resolved]
